FAERS Safety Report 12210611 (Version 1)
Quarter: 2016Q1

REPORT INFORMATION
  Report Type: Spontaneous
  Country: GB (occurrence: GB)
  Receive Date: 20160325
  Receipt Date: 20160325
  Transmission Date: 20160526
  Serious: Yes (Other)
  Sender: FDA-Public Use
  Company Number: GB-TEVA-645316ACC

PATIENT
  Age: 80 Year
  Sex: Male

DRUGS (15)
  1. DIHYDROCODEINE [Concomitant]
     Active Substance: DIHYDROCODEINE
     Indication: PAIN
  2. HYDROXYZINE [Concomitant]
     Active Substance: HYDROXYZINE\HYDROXYZINE HYDROCHLORIDE
  3. PERINDOPRIL [Concomitant]
     Active Substance: PERINDOPRIL
  4. WARFARIN [Concomitant]
     Active Substance: WARFARIN
  5. DIGOXIN. [Concomitant]
     Active Substance: DIGOXIN
  6. TRAMADOL. [Concomitant]
     Active Substance: TRAMADOL
  7. DABIGATRAN [Concomitant]
     Active Substance: DABIGATRAN
  8. SPIRONOLACTONE. [Concomitant]
     Active Substance: SPIRONOLACTONE
  9. QUININE SULPHATE [Concomitant]
     Active Substance: QUININE SULFATE
     Indication: MUSCLE SPASMS
  10. CETIRIZINE [Suspect]
     Active Substance: CETIRIZINE HYDROCHLORIDE
     Indication: PRURITUS
     Dosage: 30 MILLIGRAM DAILY; 30 MG DAILY
  11. FUROSEMIDE. [Concomitant]
     Active Substance: FUROSEMIDE
  12. ASPIRIN. [Concomitant]
     Active Substance: ASPIRIN
  13. GABAPENTIN. [Concomitant]
     Active Substance: GABAPENTIN
  14. ATORVASTATIN [Concomitant]
     Active Substance: ATORVASTATIN
     Dosage: 80 MILLIGRAM DAILY;
  15. OMEPRAZOLE. [Concomitant]
     Active Substance: OMEPRAZOLE

REACTIONS (4)
  - Restlessness [Not Recovered/Not Resolved]
  - Aggression [Not Recovered/Not Resolved]
  - Insomnia [Not Recovered/Not Resolved]
  - Nightmare [Not Recovered/Not Resolved]
